FAERS Safety Report 6817779-1 (Version None)
Quarter: 2010Q3

REPORT INFORMATION
  Report Type: 
  Country: None (occurrence: None)
  Receive Date: 20100706
  Receipt Date: 20100701
  Transmission Date: 20110219
  Serious: Yes (Other)
  Sender: FDA-Public Use
  Company Number: FR-ROCHE-673384

PATIENT
  Sex: Male

DRUGS (4)
  1. RIBAVIRIN [Suspect]
     Indication: ANAEMIA OF CHRONIC DISEASE
     Dosage: LAST DOSE PRIOR TO SAE: 07 SEP 2009
     Route: 048
     Dates: start: 20081215
  2. RIBAVIRIN [Suspect]
     Dosage: LAST DOSE PRIOR TO SAE : 15 NOV 2009, DOSAGE FORM 200MG
     Route: 048
     Dates: start: 20090923
  3. EPOETIN BETA [Suspect]
     Indication: ANAEMIA OF CHRONIC DISEASE
     Dosage: LAST DOSE PRIOR TO SAE: NOV 2009, DOSE:30000 UI
     Route: 058
     Dates: start: 20090624
  4. PEGINTERFERON ALFA-2A [Suspect]
     Indication: ANAEMIA OF CHRONIC DISEASE
     Dosage: LAST DOSE PRIOR TO SAE: 09 NOV 2009, FORM: 180 UG/0.5 ML
     Route: 058
     Dates: start: 20081215

REACTIONS (2)
  - ANAEMIA [None]
  - ANTI-ERYTHROPOIETIN ANTIBODY [None]
